FAERS Safety Report 4499040-6 (Version None)
Quarter: 2004Q4

REPORT INFORMATION
  Report Type: 
  Country: None (occurrence: None)
  Receive Date: 20041110
  Receipt Date: 20041110
  Transmission Date: 20050328
  Serious: No
  Sender: FDA-Public Use
  Company Number: None

PATIENT
  Age: 79 Year
  Sex: Male

DRUGS (2)
  1. ROFECOXIB [Suspect]
     Indication: ARTHRALGIA
     Dosage: 25 MG PO DAILY
     Route: 048
  2. ROFECOXIB [Suspect]
     Indication: PAIN IN EXTREMITY
     Dosage: 25 MG PO DAILY
     Route: 048

REACTIONS (1)
  - GASTROINTESTINAL HAEMORRHAGE [None]
